FAERS Safety Report 7676711-1 (Version None)
Quarter: 2011Q3

REPORT INFORMATION
  Report Type: 
  Country: None (occurrence: None)
  Receive Date: 20110811
  Receipt Date: 20110803
  Transmission Date: 20111222
  Serious: Yes (Hospitalization)
  Sender: FDA-Public Use
  Company Number: JP-JNJFOC-20110803603

PATIENT
  Age: 81 Year
  Sex: Male

DRUGS (10)
  1. GALANTAMINE HYDROBROMIDE [Suspect]
     Indication: DEMENTIA ALZHEIMER'S TYPE
     Route: 048
     Dates: start: 20110706, end: 20110803
  2. AMLODIPINE [Concomitant]
     Route: 048
  3. PLAVIX [Concomitant]
     Route: 048
  4. NATEGLINIDE [Concomitant]
     Route: 048
  5. FAMOTIDINE [Concomitant]
     Route: 048
  6. DIOVAN [Concomitant]
     Route: 048
  7. CEROCRAL [Concomitant]
     Route: 048
  8. ALLOPURINOL [Concomitant]
     Route: 048
  9. BIO-THREE [Concomitant]
     Route: 048
  10. ADALAT [Concomitant]
     Route: 048

REACTIONS (3)
  - VOMITING [None]
  - HYPERTENSION [None]
  - DIZZINESS [None]
